FAERS Safety Report 24740724 (Version 1)
Quarter: 2024Q4

REPORT INFORMATION
  Report Type: Spontaneous
  Country: CN (occurrence: CN)
  Receive Date: 20241217
  Receipt Date: 20241217
  Transmission Date: 20250114
  Serious: Yes (Other)
  Sender: NOVO NORDISK
  Company Number: None

PATIENT
  Age: 37 Year
  Sex: Female
  Weight: 57 kg

DRUGS (1)
  1. OZEMPIC [Suspect]
     Active Substance: SEMAGLUTIDE
     Indication: Diabetes mellitus
     Dosage: 0.25 ML, QW
     Route: 058
     Dates: start: 20241021, end: 2024

REACTIONS (2)
  - Gastrointestinal disorder [Recovering/Resolving]
  - Dizziness [Recovering/Resolving]

NARRATIVE: CASE EVENT DATE: 20241129
